FAERS Safety Report 7001880-6 (Version None)
Quarter: 2010Q3

REPORT INFORMATION
  Report Type: 
  Country: None (occurrence: None)
  Receive Date: 20100920
  Receipt Date: 20100907
  Transmission Date: 20110219
  Serious: Yes (Death)
  Sender: FDA-Public Use
  Company Number: NZ-MERCK-1009USA00881

PATIENT
  Age: 72 Year
  Sex: Female

DRUGS (2)
  1. ZOCOR [Suspect]
     Indication: ARTERIOSCLEROSIS
     Route: 048
     Dates: end: 20091201
  2. ERYTHROMYCIN [Suspect]
     Route: 065

REACTIONS (4)
  - DRUG INTERACTION [None]
  - PULMONARY OEDEMA [None]
  - RENAL FAILURE ACUTE [None]
  - RHABDOMYOLYSIS [None]
